FAERS Safety Report 10311535 (Version 1)
Quarter: 2014Q3

REPORT INFORMATION
  Report Type: Spontaneous
  Country: US (occurrence: US)
  Receive Date: 20140717
  Receipt Date: 20140717
  Transmission Date: 20150326
  Serious: Yes (Hospitalization)
  Sender: FDA-Public Use
  Company Number: US-GLAXOSMITHKLINE-A1080914A

PATIENT
  Age: 79 Year
  Sex: Female

DRUGS (6)
  1. PROCRIT [Concomitant]
     Active Substance: ERYTHROPOIETIN
  2. SPIRIVA [Concomitant]
     Active Substance: TIOTROPIUM BROMIDE MONOHYDRATE
  3. OXYGEN. [Concomitant]
     Active Substance: OXYGEN
  4. LOVASTATIN. [Concomitant]
     Active Substance: LOVASTATIN
  5. ADVAIR HFA [Suspect]
     Active Substance: FLUTICASONE PROPIONATE\SALMETEROL XINAFOATE
     Indication: CHRONIC OBSTRUCTIVE PULMONARY DISEASE
     Dosage: 1PUFF TWICE PER DAY
     Route: 065
     Dates: start: 2005
  6. IRON PILLS [Concomitant]

REACTIONS (13)
  - Mineral supplementation [Unknown]
  - Osteoporosis [Unknown]
  - Pneumonia [Recovering/Resolving]
  - Dyspnoea [Recovering/Resolving]
  - Drug administration error [Unknown]
  - Transfusion [Unknown]
  - Thrombosis [Unknown]
  - Bone density abnormal [Unknown]
  - Anaemia [Unknown]
  - Pneumothorax [Unknown]
  - Blood iron decreased [Unknown]
  - Fatigue [Unknown]
  - Haemoglobin decreased [Unknown]

NARRATIVE: CASE EVENT DATE: 200504
